FAERS Safety Report 5806820-0 (Version None)
Quarter: 2008Q3

REPORT INFORMATION
  Report Type: 
  Country: None (occurrence: None)
  Receive Date: 20080711
  Receipt Date: 20070911
  Transmission Date: 20090109
  Serious: Yes (Life-Threatening, Other)
  Sender: FDA-Public Use
  Company Number: US-BAYER-US-2007-034252

PATIENT
  Age: 55 Year
  Sex: Female
  Weight: 91 kg

DRUGS (1)
  1. MAGNEVIST [Suspect]
     Indication: NUCLEAR MAGNETIC RESONANCE IMAGING
     Dosage: TOTAL DAILY DOSE: 20 ML  UNIT DOSE: 20 ML
     Route: 042
     Dates: start: 20070801, end: 20070801

REACTIONS (4)
  - DYSPHAGIA [None]
  - OROPHARYNGEAL PAIN [None]
  - SWOLLEN TONGUE [None]
  - THROAT IRRITATION [None]
